FAERS Safety Report 4979429-9 (Version None)
Quarter: 2006Q2

REPORT INFORMATION
  Report Type: 
  Country: None (occurrence: None)
  Receive Date: 20060421
  Receipt Date: 20060410
  Transmission Date: 20061013
  Serious: Yes (Other)
  Sender: FDA-Public Use
  Company Number: US-JNJFOC-20060403840

PATIENT
  Sex: Female

DRUGS (12)
  1. ORTHO EVRA [Suspect]
     Indication: CONTRACEPTION
  2. AZITHROMYCIN [Concomitant]
     Indication: SINUSITIS
     Route: 064
  3. PSEUDOEPHEDRINE HCL [Concomitant]
     Indication: ACUTE SINUSITIS
     Route: 064
  4. PRENATAL VITAMINS [Concomitant]
     Route: 064
  5. PRENATAL VITAMINS [Concomitant]
     Route: 064
  6. PRENATAL VITAMINS [Concomitant]
     Route: 064
  7. PRENATAL VITAMINS [Concomitant]
     Route: 064
  8. PRENATAL VITAMINS [Concomitant]
     Route: 064
  9. PRENATAL VITAMINS [Concomitant]
     Route: 064
  10. PRENATAL VITAMINS [Concomitant]
     Route: 064
  11. PRENATAL VITAMINS [Concomitant]
     Route: 064
  12. ZANTAC [Concomitant]
     Route: 064

REACTIONS (2)
  - JAUNDICE [None]
  - PREMATURE BABY [None]
